FAERS Safety Report 14793829 (Version 1)
Quarter: 2018Q2

REPORT INFORMATION
  Report Type: Spontaneous
  Country: US (occurrence: US)
  Receive Date: 20180423
  Receipt Date: 20180423
  Transmission Date: 20180711
  Serious: No
  Sender: FDA-Public Use
  Company Number: US-GLAXOSMITHKLINE-US2018068904

PATIENT
  Sex: Female

DRUGS (13)
  1. TRELEGY ELLIPTA [Suspect]
     Active Substance: FLUTICASONE FUROATE\UMECLIDINIUM BROMIDE\VILANTEROL TRIFENATATE
     Indication: CHRONIC OBSTRUCTIVE PULMONARY DISEASE
     Dosage: UNK UNK, U
  2. ALBUTEROL. [Concomitant]
     Active Substance: ALBUTEROL
  3. VITAMIN B12 [Concomitant]
     Active Substance: CYANOCOBALAMIN
  4. METFORMIN [Concomitant]
     Active Substance: METFORMIN HYDROCHLORIDE
  5. VITAMIN D3 [Concomitant]
     Active Substance: CHOLECALCIFEROL
  6. ASPIRIN. [Concomitant]
     Active Substance: ASPIRIN
  7. LIPITOR [Concomitant]
     Active Substance: ATORVASTATIN CALCIUM
  8. PRILOSEC [Concomitant]
     Active Substance: OMEPRAZOLE MAGNESIUM
  9. FIBER [Concomitant]
     Active Substance: PSYLLIUM HUSK
  10. LOZOL [Concomitant]
     Active Substance: INDAPAMIDE
  11. MAGNESIUM [Concomitant]
     Active Substance: MAGNESIUM
  12. MOTRIN [Concomitant]
     Active Substance: IBUPROFEN
  13. LOFIBRA [Concomitant]
     Active Substance: FENOFIBRATE

REACTIONS (1)
  - Bronchospasm [Unknown]
